FAERS Safety Report 25731629 (Version 1)
Quarter: 2025Q3

REPORT INFORMATION
  Report Type: Other
  Country: US (occurrence: US)
  Receive Date: 20250827
  Receipt Date: 20250827
  Transmission Date: 20251021
  Serious: No
  Sender: RVL PHARMACEUTICALS
  Company Number: US-RVL_Pharmaceuticals-USA-POI1255202400244

PATIENT
  Age: 77 Year
  Sex: Female

DRUGS (4)
  1. UPNEEQ [Suspect]
     Active Substance: OXYMETAZOLINE HYDROCHLORIDE
     Indication: Eyelid ptosis
     Dosage: OU
     Route: 047
     Dates: start: 202409, end: 202411
  2. UPNEEQ [Suspect]
     Active Substance: OXYMETAZOLINE HYDROCHLORIDE
     Dosage: MULTIPLE DROPS, OU
     Route: 047
     Dates: start: 202409, end: 202409
  3. SYSTANE (HYPROMELLOSE 2910 (4000 MPA.S)) [Concomitant]
     Active Substance: HYPROMELLOSE 2910 (4000 MPA.S)
     Indication: Dry eye
     Route: 065
  4. UNSPECIFIED INGREDIENT [Concomitant]
     Active Substance: UNSPECIFIED INGREDIENT
     Indication: Product used for unknown indication

REACTIONS (9)
  - Abnormal sensation in eye [Recovered/Resolved]
  - Eye irritation [Recovering/Resolving]
  - Periorbital swelling [Recovering/Resolving]
  - Swelling face [Recovered/Resolved]
  - Asthenopia [Recovering/Resolving]
  - Eye pain [Recovering/Resolving]
  - Dry eye [Recovering/Resolving]
  - Vision blurred [Recovering/Resolving]
  - Off label use [Recovered/Resolved]

NARRATIVE: CASE EVENT DATE: 20240901
